FAERS Safety Report 6098903-8 (Version None)
Quarter: 2009Q1

REPORT INFORMATION
  Report Type: 
  Country: None (occurrence: None)
  Receive Date: 20090302
  Receipt Date: 20090224
  Transmission Date: 20090719
  Serious: Yes (Death)
  Sender: FDA-Public Use
  Company Number: US-GENENTECH-278125

PATIENT
  Age: 53 Year
  Sex: Female

DRUGS (1)
  1. ACTIVASE [Suspect]
     Indication: PULMONARY EMBOLISM
     Dosage: UNK
     Dates: start: 20050516

REACTIONS (1)
  - DEATH [None]
